FAERS Safety Report 13814805 (Version 1)
Quarter: 2017Q3

REPORT INFORMATION
  Report Type: Spontaneous
  Country: US (occurrence: US)
  Receive Date: 20170731
  Receipt Date: 20170731
  Transmission Date: 20171127
  Serious: Yes (Death, Hospitalization, Other)
  Sender: FDA-Public Use
  Company Number: US-TEVA-792060USA

PATIENT
  Age: 71 Year
  Sex: Male

DRUGS (1)
  1. ATORVASTATIN [Suspect]
     Active Substance: ATORVASTATIN
     Indication: HYPERLIPIDAEMIA
     Route: 065

REACTIONS (7)
  - Autoimmune disorder [Fatal]
  - Dysphagia [Unknown]
  - Renal tubular necrosis [Unknown]
  - Myopathy [Fatal]
  - Dyspnoea [Unknown]
  - Peripheral ischaemia [Unknown]
  - Dysphonia [Unknown]
